FAERS Safety Report 11300105 (Version 1)
Quarter: 2015Q3

REPORT INFORMATION
  Report Type: Spontaneous
  Country: US (occurrence: US)
  Receive Date: 20150722
  Receipt Date: 20150722
  Transmission Date: 20151125
  Serious: Yes (Hospitalization)
  Sender: FDA-Public Use
  Company Number: US-ELI_LILLY_AND_COMPANY-US201303009428

PATIENT
  Sex: Female
  Weight: 72.38 kg

DRUGS (2)
  1. HUMATROPE [Suspect]
     Active Substance: SOMATROPIN
     Indication: DWARFISM
     Dosage: 0.3 MG, QD
     Route: 058
     Dates: start: 20121204, end: 20130401
  2. HUMATROPE [Suspect]
     Active Substance: SOMATROPIN
     Dosage: UNK
     Dates: start: 20130508

REACTIONS (2)
  - Intentional product misuse [Unknown]
  - Pancreatitis [Recovered/Resolved]
